FAERS Safety Report 8503200-4 (Version None)
Quarter: 2012Q3

REPORT INFORMATION
  Report Type: 
  Country: None (occurrence: None)
  Receive Date: 20120702
  Receipt Date: 20110506
  Transmission Date: 20120928
  Serious: Yes (Other)
  Sender: FDA-Public Use
  Company Number: PL-025222

PATIENT
  Age: 74 Year
  Sex: Male

DRUGS (1)
  1. CHLORAMBUCIL (CHLORAMBUCIL) (TABLET) [Suspect]
     Indication: CHRONIC LYMPHOCYTIC LEUKAEMIA
     Dosage: 10 MG/M2, ORAL
     Route: 048
     Dates: start: 20110117

REACTIONS (1)
  - PNEUMONIA [None]
